FAERS Safety Report 4429371-7 (Version None)
Quarter: 2004Q3

REPORT INFORMATION
  Report Type: 
  Country: None (occurrence: None)
  Receive Date: 20040816
  Receipt Date: 20040806
  Transmission Date: 20050211
  Serious: No
  Sender: FDA-Public Use
  Company Number: 2004-119239-NL

PATIENT
  Age: 59 Year
  Sex: Female

DRUGS (4)
  1. MIRTAZAPINE [Suspect]
     Indication: DEPRESSION
     Dosage: 30 MG ORAL
     Route: 048
     Dates: start: 20010820
  2. TRIMIPRAMINE MALEATE [Suspect]
     Indication: DEPRESSION
     Dosage: DF   ORAL
     Route: 048
     Dates: start: 19990801, end: 20010819
  3. FLUOXETINE HCL [Suspect]
     Indication: DEPRESSION
     Dosage: DF  ORAL      A FEW MONTHS
     Route: 048
     Dates: end: 20020101
  4. SERTRALINE HYDROCHLORIDE [Suspect]
     Indication: DEPRESSION
     Dosage: 100 MG  ORAL     A FEW MONTHS
     Route: 048

REACTIONS (2)
  - DRUG LEVEL BELOW THERAPEUTIC [None]
  - METABOLIC DISORDER [None]
